FAERS Safety Report 9848936 (Version 1)
Quarter: 2014Q1

REPORT INFORMATION
  Report Type: Spontaneous
  Country: US (occurrence: None)
  Receive Date: 20140127
  Receipt Date: 20140127
  Transmission Date: 20141002
  Serious: Yes (Other)
  Sender: FDA-Public Use
  Company Number: None

PATIENT
  Age: 9 Month
  Sex: Male
  Weight: 9.53 kg

DRUGS (2)
  1. SUPRAX [Suspect]
     Indication: NASOPHARYNGITIS
     Route: 048
     Dates: start: 20140122, end: 20140123
  2. SUPRAX [Suspect]
     Indication: EAR INFECTION
     Route: 048
     Dates: start: 20140122, end: 20140123

REACTIONS (1)
  - Urticaria [None]
